FAERS Safety Report 10419246 (Version 3)
Quarter: 2014Q4

REPORT INFORMATION
  Report Type: Report from Study
  Country: IE (occurrence: IE)
  Receive Date: 20140829
  Receipt Date: 20141124
  Transmission Date: 20150528
  Serious: Yes (Other)
  Sender: FDA-Public Use
  Company Number: IE-GLAXOSMITHKLINE-B0873106B

PATIENT
  Age: 59 Year
  Sex: Male
  Weight: 80 kg

DRUGS (2)
  1. DABRAFENIB [Suspect]
     Active Substance: DABRAFENIB
     Indication: METASTATIC MALIGNANT MELANOMA
     Dosage: 150 MG BD FROM 31MAY2014 - 17JUN2014. 100 MG BD FROM 24JUN2014 - 18 AUG 2014.75 MG BD FROM 26 A[...]
     Route: 048
     Dates: start: 20121118, end: 20140911
  2. TRAMETINIB [Suspect]
     Active Substance: TRAMETINIB
     Indication: METASTATIC MALIGNANT MELANOMA
     Dosage: 2 MG, QD
     Route: 048
     Dates: start: 20140531, end: 20140911

REACTIONS (2)
  - Sweating fever [Recovered/Resolved]
  - Sweating fever [Not Recovered/Not Resolved]

NARRATIVE: CASE EVENT DATE: 20140617
